FAERS Safety Report 8383237-9 (Version None)
Quarter: 2012Q2

REPORT INFORMATION
  Report Type: 
  Country: None (occurrence: None)
  Receive Date: 20120522
  Receipt Date: 20120507
  Transmission Date: 20120825
  Serious: Yes (Death, Other)
  Sender: FDA-Public Use
  Company Number: 201205000015

PATIENT
  Sex: Female

DRUGS (1)
  1. INOMAX [Suspect]
     Indication: PERSISTENT FOETAL CIRCULATION
     Dosage: 20 PPM, CONTINUOUS
     Dates: start: 20120430, end: 20120506

REACTIONS (5)
  - WITHDRAWAL OF LIFE SUPPORT [None]
  - PERSISTENT FOETAL CIRCULATION [None]
  - OXYGEN SATURATION DECREASED [None]
  - DEVICE FAILURE [None]
  - GASTROINTESTINAL HAEMORRHAGE [None]
